FAERS Safety Report 10029898 (Version 1)
Quarter: 2014Q1

REPORT INFORMATION
  Report Type: Spontaneous
  Country: US (occurrence: None)
  Receive Date: 20140306
  Receipt Date: 20140306
  Transmission Date: 20141002
  Serious: Yes (Other)
  Sender: FDA-Public Use
  Company Number: 163-21880-12111737

PATIENT
  Age: 65 Year
  Sex: Female

DRUGS (6)
  1. REVLIMID (LENALIDOMIDE) (CAPSULES) [Suspect]
     Indication: PLASMA CELL MYELOMA
     Dosage: 18.75 MG, 21 IN 28 D, PO
     Route: 048
     Dates: start: 20120823
  2. NEXIUM (ESOMEPRAZOLE) [Concomitant]
  3. ASA (ACETYLSALICYLIC ACID) [Concomitant]
  4. REGLAN (METOCLOPRAMIDE) [Concomitant]
  5. MORPHINE (MORPHINE) [Concomitant]
  6. SENNA (SENNA) [Concomitant]

REACTIONS (2)
  - Rash maculo-papular [None]
  - Pruritus [None]
